FAERS Safety Report 5360921-2 (Version None)
Quarter: 2007Q2

REPORT INFORMATION
  Report Type: 
  Country: None (occurrence: None)
  Receive Date: 20070618
  Receipt Date: 20070608
  Transmission Date: 20071010
  Serious: Yes (Other)
  Sender: FDA-Public Use
  Company Number: US-PFIZER INC-2007047262

PATIENT
  Sex: Female

DRUGS (10)
  1. ZOLOFT [Suspect]
     Indication: DEPRESSION
     Route: 048
  2. AMBIEN [Concomitant]
  3. AGGRENOX [Concomitant]
  4. TOPAMAX [Concomitant]
  5. LIPITOR [Concomitant]
  6. FOSAMAX [Concomitant]
  7. WELLBUTRIN [Concomitant]
  8. PROTONIX [Concomitant]
  9. MONTELUKAST SODIUM [Concomitant]
  10. BUSPAR [Concomitant]

REACTIONS (1)
  - LICHEN PLANUS [None]
